FAERS Safety Report 8504020-7 (Version None)
Quarter: 2012Q3

REPORT INFORMATION
  Report Type: 
  Country: None (occurrence: None)
  Receive Date: 20120711
  Receipt Date: 20120709
  Transmission Date: 20120928
  Serious: Yes (Death, Hospitalization, Other)
  Sender: FDA-Public Use
  Company Number: PHHY2012MX021415

PATIENT
  Sex: Female

DRUGS (6)
  1. DIOVAN [Suspect]
     Dosage: 1 TABLET (320 MG) PER DAY
  2. KETOSTERIL [Concomitant]
     Dosage: 4 TABLETS PER DAY
  3. VITAMIN TAB [Concomitant]
     Dosage: 1 TABLET PER DAY
     Dates: start: 20120601
  4. CALCIUM CARBONATE [Concomitant]
     Dosage: 1 TABLET PER DAY
  5. LYRICA [Concomitant]
     Dosage: 2 TABLETS PER DAY
  6. DIOVAN HCT [Suspect]
     Indication: HYPERTENSION
     Dosage: 1 DF (160MG VALS/12.5MG HYDROCHLOROTHIAZIDE), DAILY
     Dates: start: 20090801, end: 20120301

REACTIONS (6)
  - GENERAL PHYSICAL CONDITION ABNORMAL [None]
  - LIMB DISCOMFORT [None]
  - DECREASED APPETITE [None]
  - RENAL DISORDER [None]
  - DEATH [None]
  - HAEMOGLOBIN DECREASED [None]
